FAERS Safety Report 13192835 (Version 3)
Quarter: 2017Q1

REPORT INFORMATION
  Report Type: Report from Study
  Country: CO (occurrence: CO)
  Receive Date: 20170207
  Receipt Date: 20170328
  Transmission Date: 20170428
  Serious: Yes (Other)
  Sender: FDA-Public Use
  Company Number: CO-INCYTE CORPORATION-2016IN006772

PATIENT
  Age: 74 Year
  Sex: Male
  Weight: 63 kg

DRUGS (6)
  1. JAKAVI [Suspect]
     Active Substance: RUXOLITINIB
     Indication: MYELOFIBROSIS
     Dosage: 5 MG, QD
     Route: 048
     Dates: start: 20160922
  2. JAKAVI [Suspect]
     Active Substance: RUXOLITINIB
     Dosage: 20 MG, Q12H (MORNING AND AFTERNOON)
     Route: 048
  3. ATIVAN [Concomitant]
     Active Substance: LORAZEPAM
     Indication: PRODUCT USED FOR UNKNOWN INDICATION
     Dosage: 2 MG, QD
     Route: 065
  4. JAKAVI [Suspect]
     Active Substance: RUXOLITINIB
     Dosage: 15 MG, Q12H
     Route: 048
  5. ECOTRIN [Concomitant]
     Active Substance: ASPIRIN
     Indication: PRODUCT USED FOR UNKNOWN INDICATION
     Dosage: 81 MG, QOD
     Route: 065
  6. EUTIROX [Concomitant]
     Active Substance: LEVOTHYROXINE SODIUM
     Indication: PRODUCT USED FOR UNKNOWN INDICATION
     Dosage: 50 MG AND THREE TIMES A WEEK 75 MG
     Route: 065

REACTIONS (21)
  - Nausea [Unknown]
  - Haemoglobin decreased [Unknown]
  - Platelet count decreased [Unknown]
  - Lymphocyte count increased [Unknown]
  - Fatigue [Unknown]
  - Dyspnoea [Unknown]
  - Sinusitis [Unknown]
  - Asthenia [Unknown]
  - Arthralgia [Unknown]
  - Platelet count increased [Unknown]
  - Pain in extremity [Unknown]
  - Feeling abnormal [Unknown]
  - Weight increased [Unknown]
  - White blood cell count increased [Unknown]
  - Dry eye [Unknown]
  - Dizziness [Unknown]
  - Blood lactate dehydrogenase increased [Unknown]
  - Gastric dilatation [Unknown]
  - Drug dispensing error [Unknown]
  - Speech disorder [Unknown]
  - Visual acuity reduced [Unknown]

NARRATIVE: CASE EVENT DATE: 20161019
